FAERS Safety Report 5301174-0 (Version None)
Quarter: 2007Q2

REPORT INFORMATION
  Report Type: 
  Country: None (occurrence: None)
  Receive Date: 20070418
  Receipt Date: 20070412
  Transmission Date: 20071010
  Serious: Yes (Hospitalization)
  Sender: FDA-Public Use
  Company Number: US-AMGEN-US190913

PATIENT
  Sex: Male

DRUGS (2)
  1. ENBREL [Suspect]
     Indication: RHEUMATOID ARTHRITIS
     Route: 058
     Dates: start: 20020701, end: 20040101
  2. METHOTREXATE [Concomitant]
     Route: 065
     Dates: start: 19980819, end: 20040916

REACTIONS (4)
  - ANGINA UNSTABLE [None]
  - INFECTION [None]
  - MEDIASTINITIS [None]
  - STAPHYLOCOCCAL INFECTION [None]
